FAERS Safety Report 7591520-X (Version None)
Quarter: 2011Q2

REPORT INFORMATION
  Report Type: 
  Country: None (occurrence: None)
  Receive Date: 20110627
  Receipt Date: 20110613
  Transmission Date: 20111010
  Serious: Yes (Hospitalization, Other)
  Sender: FDA-Public Use
  Company Number: 2011MA007142

PATIENT
  Age: 74 Year
  Sex: Female

DRUGS (2)
  1. HALOPERIDOL LACTATE [Suspect]
     Indication: SCHIZOPHRENIA
     Dosage: 2.5 MG;
  2. DIAZEPAM [Concomitant]

REACTIONS (6)
  - LEUKOPENIA [None]
  - LYMPHADENOPATHY [None]
  - ABNORMAL BEHAVIOUR [None]
  - BLOOD DISORDER [None]
  - LYMPHOMA [None]
  - SPLENOMEGALY [None]
